FAERS Safety Report 23745073 (Version 1)
Quarter: 2024Q2

REPORT INFORMATION
  Report Type: Spontaneous
  Country: US (occurrence: US)
  Receive Date: 20240415
  Receipt Date: 20240415
  Transmission Date: 20240716
  Serious: Yes (Other)
  Sender: FDA-Public Use
  Company Number: US-ABBVIE-5719033

PATIENT
  Sex: Male

DRUGS (1)
  1. DURYSTA [Suspect]
     Active Substance: BIMATOPROST
     Indication: Glaucoma
     Dosage: TIME INTERVAL: AS NECESSARY
     Route: 050
     Dates: start: 202312, end: 20240410

REACTIONS (2)
  - Intraocular lens implant [Unknown]
  - Corneal oedema [Recovered/Resolved]

NARRATIVE: CASE EVENT DATE: 20240301
